FAERS Safety Report 7277156-9 (Version None)
Quarter: 2011Q1

REPORT INFORMATION
  Report Type: 
  Country: None (occurrence: None)
  Receive Date: 20110202
  Receipt Date: 20110202
  Transmission Date: 20110831
  Serious: Yes (Hospitalization)
  Sender: FDA-Public Use
  Company Number: None

PATIENT
  Sex: Female
  Weight: 73.2 kg

DRUGS (2)
  1. LEVAQUIN [Suspect]
     Indication: SINUS DISORDER
     Dosage: 500 MG EACH DAY BY MOUTH
     Route: 048
     Dates: start: 20101115
  2. LEVAQUIN [Suspect]
     Indication: SINUS DISORDER
     Dosage: 500 MG EACH DAY BY MOUTH
     Route: 048
     Dates: start: 20101122

REACTIONS (4)
  - PAIN [None]
  - ARTHRALGIA [None]
  - PAIN IN EXTREMITY [None]
  - TENDON DISORDER [None]
